FAERS Safety Report 6619627-1 (Version None)
Quarter: 2010Q1

REPORT INFORMATION
  Report Type: 
  Country: None (occurrence: None)
  Receive Date: 20100309
  Receipt Date: 20100225
  Transmission Date: 20100710
  Serious: No
  Sender: FDA-Public Use
  Company Number: US-JNJFOC-20100300038

PATIENT
  Sex: Female
  Weight: 111.13 kg

DRUGS (6)
  1. DURAGESIC-100 [Suspect]
     Indication: PAIN
     Route: 062
  2. DURAGESIC-100 [Suspect]
     Route: 062
  3. NEXIUM [Concomitant]
     Indication: GASTRIC DISORDER
     Route: 048
  4. OXYCODONE HCL [Concomitant]
     Indication: PAIN
     Dosage: 5/325MG, 1-2 DAILY
     Route: 048
  5. TRIAMTERENE [Concomitant]
     Indication: BLOOD PRESSURE
     Route: 048
  6. ESTRACE [Concomitant]
     Indication: HOT FLUSH
     Route: 048

REACTIONS (3)
  - ABDOMINAL PAIN UPPER [None]
  - GASTROINTESTINAL DISORDER [None]
  - WRONG TECHNIQUE IN DRUG USAGE PROCESS [None]
